FAERS Safety Report 11642644 (Version 9)
Quarter: 2018Q2

REPORT INFORMATION
  Report Type: Spontaneous
  Country: CA (occurrence: CA)
  Receive Date: 20151020
  Receipt Date: 20180514
  Transmission Date: 20180711
  Serious: Yes (Hospitalization, Other)
  Sender: FDA-Public Use
  Company Number: CA-ABBVIE-15K-028-1481596-00

PATIENT
  Age: 66 Year
  Sex: Male

DRUGS (7)
  1. HUMIRA [Suspect]
     Active Substance: ADALIMUMAB
     Indication: RHEUMATOID ARTHRITIS
     Dosage: DURATION: MORE THAN 6 MONTHS
     Route: 058
  2. PLAQUENIL [Suspect]
     Active Substance: HYDROXYCHLOROQUINE SULFATE
     Indication: RHEUMATOID ARTHRITIS
     Route: 065
  3. XELJANZ [Suspect]
     Active Substance: TOFACITINIB CITRATE
     Indication: RHEUMATOID ARTHRITIS
     Route: 048
     Dates: start: 20151019, end: 2016
  4. ARAVA [Suspect]
     Active Substance: LEFLUNOMIDE
     Indication: RHEUMATOID ARTHRITIS
     Route: 048
  5. SULFASALAZINE. [Suspect]
     Active Substance: SULFASALAZINE
     Indication: RHEUMATOID ARTHRITIS
     Route: 048
  6. METHOTREXATE SODIUM. [Suspect]
     Active Substance: METHOTREXATE SODIUM
     Indication: RHEUMATOID ARTHRITIS
     Route: 058
  7. HUMIRA [Suspect]
     Active Substance: ADALIMUMAB
     Route: 058

REACTIONS (30)
  - Skin wound [Recovered/Resolved]
  - Hypoaesthesia [Recovered/Resolved]
  - Fall [Unknown]
  - Carpal tunnel syndrome [Not Recovered/Not Resolved]
  - Neck deformity [Not Recovered/Not Resolved]
  - Hand deformity [Not Recovered/Not Resolved]
  - Respiratory disorder [Unknown]
  - Balance disorder [Not Recovered/Not Resolved]
  - Wound complication [Unknown]
  - Drug effect incomplete [Unknown]
  - Swelling [Unknown]
  - Tracheostomy [Unknown]
  - Muscle tightness [Unknown]
  - Drug ineffective [Not Recovered/Not Resolved]
  - Nausea [Recovering/Resolving]
  - Diarrhoea [Recovering/Resolving]
  - Bursitis [Unknown]
  - Nerve compression [Unknown]
  - Musculoskeletal pain [Recovered/Resolved]
  - Nocturnal dyspnoea [Recovered/Resolved]
  - Intervertebral disc operation [Unknown]
  - Pain in extremity [Recovered/Resolved]
  - Pruritus [Recovered/Resolved]
  - Drug ineffective [Unknown]
  - Malaise [Recovering/Resolving]
  - Dry mouth [Not Recovered/Not Resolved]
  - Spinal cord compression [Recovered/Resolved]
  - Joint range of motion decreased [Unknown]
  - Wound infection staphylococcal [Recovered/Resolved]
  - Arthralgia [Not Recovered/Not Resolved]
